FAERS Safety Report 23249349 (Version 1)
Quarter: 2023Q4

REPORT INFORMATION
  Report Type: Spontaneous
  Country: US (occurrence: US)
  Receive Date: 20231201
  Receipt Date: 20231201
  Transmission Date: 20240110
  Serious: Yes (Other)
  Sender: FDA-Public Use
  Company Number: US-STRIDES ARCOLAB LIMITED-2023SP007851

PATIENT
  Age: 45 Year
  Sex: Female

DRUGS (7)
  1. TRAZODONE [Suspect]
     Active Substance: TRAZODONE HYDROCHLORIDE
     Indication: Insomnia
     Dosage: UNK
     Route: 065
  2. HYDROXYZINE HYDROCHLORIDE [Suspect]
     Active Substance: HYDROXYZINE HYDROCHLORIDE
     Indication: Insomnia
     Dosage: UNK
     Route: 065
  3. TOPIRAMATE [Suspect]
     Active Substance: TOPIRAMATE
     Indication: Nicotine dependence
     Dosage: UNK
     Route: 065
  4. TOPIRAMATE [Suspect]
     Active Substance: TOPIRAMATE
     Indication: Parasomnia
  5. TOPIRAMATE [Suspect]
     Active Substance: TOPIRAMATE
     Indication: Somnambulism
  6. TOPIRAMATE [Suspect]
     Active Substance: TOPIRAMATE
     Indication: Sleep-related eating disorder
  7. FLUOXETINE [Concomitant]
     Active Substance: FLUOXETINE HYDROCHLORIDE
     Indication: Major depression
     Dosage: UNK
     Route: 065
     Dates: start: 1992, end: 2008

REACTIONS (2)
  - Therapy non-responder [Unknown]
  - Off label use [Unknown]
